FAERS Safety Report 9281197 (Version 1)
Quarter: 2013Q2

REPORT INFORMATION
  Report Type: Report from Study
  Country: US (occurrence: US)
  Receive Date: 20130509
  Receipt Date: 20130509
  Transmission Date: 20140414
  Serious: Yes (Hospitalization)
  Sender: FDA-Public Use
  Company Number: US-UCBSA-085316

PATIENT
  Age: 22 Year
  Sex: Male
  Weight: 78.11 kg

DRUGS (8)
  1. CIMZIA [Suspect]
     Indication: CROHN^S DISEASE
     Dosage: DOSE:400
     Route: 058
     Dates: start: 20111101, end: 20111202
  2. CIMZIA [Suspect]
     Indication: CROHN^S DISEASE
     Route: 058
     Dates: start: 20111230, end: 20130227
  3. CARVEDILOL [Concomitant]
     Dosage: 6.25 MG BID
     Route: 048
  4. LISINOPRIL [Concomitant]
     Route: 048
  5. LOPERAMIDE [Concomitant]
     Indication: CROHN^S DISEASE
     Dosage: 2MG CAPSULE
     Route: 048
  6. VALCYTE [Concomitant]
     Dosage: 2 TABLETS OF 450 MG TWICE DAILY
     Route: 048
  7. AZATHIOPRINE [Concomitant]
     Indication: CROHN^S DISEASE
     Dates: start: 201107
  8. LEVSIN [Concomitant]
     Indication: CROHN^S DISEASE
     Dosage: UNKNOWN

REACTIONS (1)
  - Epstein-Barr virus infection [Recovered/Resolved]
